FAERS Safety Report 7300844-2 (Version None)
Quarter: 2011Q1

REPORT INFORMATION
  Report Type: 
  Country: None (occurrence: None)
  Receive Date: 20110218
  Receipt Date: 20110204
  Transmission Date: 20110831
  Serious: Yes (Hospitalization)
  Sender: FDA-Public Use
  Company Number: IT-MYLANLABS-2011S1002411

PATIENT
  Age: 78 Year
  Sex: Female

DRUGS (2)
  1. CLARITHROMYCIN [Suspect]
     Indication: SKIN INFECTION
     Route: 048
     Dates: start: 20110101, end: 20110103
  2. ITRACONAZOLE [Suspect]
     Indication: ONYCHOMYCOSIS
     Route: 048
     Dates: start: 20101231, end: 20110103

REACTIONS (2)
  - CONVULSION [None]
  - DELIRIUM [None]
